FAERS Safety Report 7502460-6 (Version None)
Quarter: 2011Q2

REPORT INFORMATION
  Report Type: 
  Country: None (occurrence: None)
  Receive Date: 20110525
  Receipt Date: 20110513
  Transmission Date: 20111010
  Serious: Yes (Hospitalization, Other)
  Sender: FDA-Public Use
  Company Number: JP-JNJFOC-20110107925

PATIENT
  Sex: Female
  Weight: 41 kg

DRUGS (30)
  1. ASVERIN [Concomitant]
     Indication: CONSTIPATION
     Route: 048
  2. GRANISETRON HCL [Concomitant]
     Indication: VOMITING
     Route: 041
     Dates: start: 20090731, end: 20090903
  3. SELBEX [Concomitant]
     Indication: GASTRITIS
     Route: 048
     Dates: start: 20090821, end: 20090825
  4. SODIUM GUALENATE [Concomitant]
     Indication: STOMATITIS
     Route: 049
     Dates: start: 20090923, end: 20090923
  5. LOXONIN [Concomitant]
     Indication: CANCER PAIN
     Route: 048
     Dates: start: 20090825, end: 20090907
  6. CODEINE PHOSPHATE [Concomitant]
     Route: 048
     Dates: start: 20090826, end: 20090830
  7. DEPAS [Concomitant]
     Indication: INSOMNIA
     Route: 048
     Dates: start: 20090903, end: 20090917
  8. GASCON [Concomitant]
     Indication: GASTRITIS
     Route: 048
     Dates: start: 20090911
  9. MORPHINE HCL ELIXIR [Concomitant]
     Indication: CANCER PAIN
     Route: 058
     Dates: start: 20090923
  10. BETAMETHASONE [Concomitant]
     Route: 065
     Dates: start: 20090926
  11. SOLU-CORTEF [Concomitant]
     Indication: PALMAR-PLANTAR ERYTHRODYSAESTHESIA SYNDROME
     Route: 042
     Dates: start: 20090731, end: 20090903
  12. DECADRON [Concomitant]
     Indication: PALMAR-PLANTAR ERYTHRODYSAESTHESIA SYNDROME
     Route: 042
     Dates: start: 20090731, end: 20090903
  13. APHTASOLON [Concomitant]
     Indication: STOMATITIS
     Route: 049
  14. CALONAL [Concomitant]
     Indication: CANCER PAIN
     Route: 048
     Dates: start: 20090924
  15. FAMOTIDINE [Concomitant]
     Indication: GASTRITIS
     Route: 048
     Dates: start: 20090825
  16. CODEINE PHOSPHATE [Concomitant]
     Dosage: DOSAGE FORM: PERORAL MEDICINE
     Route: 048
     Dates: start: 20090831, end: 20090902
  17. PROCHLORPERAZINE [Concomitant]
     Route: 048
     Dates: start: 20090921, end: 20090927
  18. MAGMITT [Concomitant]
     Indication: CONSTIPATION
     Route: 048
  19. PRIMPERAN TAB [Concomitant]
     Indication: CONSTIPATION
     Route: 048
     Dates: start: 20090826
  20. CODEINE PHOSPHATE [Concomitant]
     Dosage: DOSAGE FORM: PERORAL MEDICINE
     Route: 048
     Dates: start: 20090911, end: 20090917
  21. NEUTROGIN [Concomitant]
     Indication: NEUTROPHIL COUNT DECREASED
     Route: 058
     Dates: start: 20090821, end: 20090918
  22. FILGRASTIM [Concomitant]
     Indication: NEUTROPHIL COUNT DECREASED
     Route: 058
     Dates: start: 20090914, end: 20091002
  23. FENTANYL-100 [Concomitant]
     Indication: CANCER PAIN
     Route: 062
     Dates: start: 20090914
  24. DOXORUBICIN HCL [Suspect]
     Dosage: CYCLE 1
     Route: 042
     Dates: start: 20090731, end: 20090731
  25. BETAMETHASONE [Concomitant]
     Route: 048
  26. CODEINE PHOSPHATE [Concomitant]
     Indication: CANCER PAIN
     Dosage: DOSAGE FORM: PERORAL MEDICINE
     Route: 048
     Dates: start: 20090918
  27. MUCOSTA [Concomitant]
     Indication: GASTRITIS
     Route: 048
     Dates: start: 20090821
  28. PRIMPERAN TAB [Concomitant]
     Indication: VOMITING
     Route: 042
     Dates: start: 20090912, end: 20090912
  29. DOXORUBICIN HCL [Suspect]
     Indication: OVARIAN CANCER RECURRENT
     Dosage: CYCLE 2
     Route: 042
     Dates: start: 20090903, end: 20090903
  30. POLARAMINE [Concomitant]
     Indication: PALMAR-PLANTAR ERYTHRODYSAESTHESIA SYNDROME
     Route: 042
     Dates: start: 20090731, end: 20090903

REACTIONS (2)
  - WHITE BLOOD CELL COUNT DECREASED [None]
  - PYELONEPHRITIS [None]
